FAERS Safety Report 11670505 (Version 1)
Quarter: 2015Q4

REPORT INFORMATION
  Report Type: Spontaneous
  Country: US (occurrence: US)
  Receive Date: 20151027
  Receipt Date: 20151027
  Transmission Date: 20160304
  Serious: No
  Sender: FDA-Public Use
  Company Number: US-ELI_LILLY_AND_COMPANY-US201005001954

PATIENT
  Sex: Female

DRUGS (2)
  1. FORTEO [Suspect]
     Active Substance: TERIPARATIDE
     Dosage: UNK, EACH MORNING
  2. FORTEO [Suspect]
     Active Substance: TERIPARATIDE
     Dosage: UNK, EACH EVENING

REACTIONS (2)
  - Fatigue [Recovering/Resolving]
  - Somnolence [Recovering/Resolving]
